FAERS Safety Report 7689018-3 (Version None)
Quarter: 2011Q3

REPORT INFORMATION
  Report Type: 
  Country: None (occurrence: None)
  Receive Date: 20110817
  Receipt Date: 20110728
  Transmission Date: 20111222
  Serious: Yes (Hospitalization)
  Sender: FDA-Public Use
  Company Number: FR-PFIZER INC-2011181041

PATIENT
  Age: 12 Year
  Sex: Female
  Weight: 25 kg

DRUGS (32)
  1. ATARAX [Suspect]
     Dosage: 25 MG, 1X/DAY
     Route: 048
     Dates: start: 20110522, end: 20110522
  2. PRIMPERAN TAB [Suspect]
     Indication: PROPHYLAXIS OF NAUSEA AND VOMITING
     Dosage: 5 MG, 3X/DAY
     Route: 048
     Dates: start: 20110511, end: 20110523
  3. KETAMINE [Concomitant]
     Dosage: 2 MG/KG/H
     Dates: start: 20110504, end: 20110508
  4. MORPHINE [Concomitant]
     Dosage: 0.5 MG, AS NEEDED
     Route: 040
  5. CHLORPROMAZINE HCL [Concomitant]
     Dosage: 25 MG, 3X/DAY
     Dates: start: 20110512, end: 20110513
  6. BEPANTHEN CREME [Concomitant]
     Dosage: 1 DF, 3X/DAY
     Dates: start: 20110505, end: 20110510
  7. PIPERACILLIN AND TAZOBACTAM [Concomitant]
     Dosage: 2 GM
  8. FRESUBIN [Concomitant]
     Dosage: UNK
     Route: 051
     Dates: start: 20110516
  9. ACETAMINOPHEN [Suspect]
     Indication: PYREXIA
     Dosage: 800 MG, UNK
     Route: 048
     Dates: start: 20110521, end: 20110521
  10. ACETAMINOPHEN [Suspect]
     Dosage: 1200 MG, UNK
     Route: 048
     Dates: start: 20110522, end: 20110523
  11. MORPHINE [Concomitant]
     Dosage: 4 MG/KG/H + BOLUS OF 0.5MG EVERY 20 MIN IF NEEDED
     Dates: start: 20110504, end: 20110506
  12. CHLORPROMAZINE HCL [Concomitant]
     Dosage: 25 MG, 4X/DAY
     Dates: start: 20110505, end: 20110511
  13. TIORFAN [Concomitant]
     Dosage: 1 DF, 3X/DAY
     Route: 048
  14. ATARAX [Suspect]
     Indication: ANXIETY POSTOPERATIVE
     Dosage: 75 MG, 3X/DAY
     Route: 048
     Dates: start: 20110510, end: 20110516
  15. OMEPRAZOLE [Suspect]
     Indication: PROPHYLAXIS AGAINST GASTROINTESTINAL ULCER
     Dosage: 40 MG, 2X/DAY
     Route: 048
     Dates: start: 20110519, end: 20110523
  16. PRIMPERAN TAB [Concomitant]
     Dosage: 5 MG, 3X/DAY
  17. GENTAMICIN [Concomitant]
     Dosage: 100 MG, 1X/DAY
  18. ATARAX [Suspect]
     Dosage: 50 MG, 2X/DAY
     Route: 048
     Dates: start: 20110517, end: 20110519
  19. ATARAX [Suspect]
     Dosage: 50 MG, 2X/DAY
     Route: 048
     Dates: start: 20110521, end: 20110521
  20. ACETAMINOPHEN [Suspect]
     Dosage: 400 MG, UNK
  21. LOVENOX [Suspect]
     Indication: THROMBOSIS PROPHYLAXIS
     Dosage: 0.2 ML, UNK
     Route: 058
     Dates: start: 20110505, end: 20110523
  22. MORPHINE [Concomitant]
     Dosage: 1 MG/H
     Route: 040
     Dates: start: 20110504, end: 20110506
  23. SPASFON [Concomitant]
     Dosage: 1 DF, 3X/DAY
     Dates: start: 20110505, end: 20110510
  24. KEFANDOL [Concomitant]
     Dosage: 300 MG, 3X/DAY
  25. VANCOMYCIN [Concomitant]
     Dosage: 300 MG, 3X/DAY
  26. OMEPRAZOLE [Suspect]
     Dosage: 10 MG, 1X/DAY
     Dates: start: 20110524, end: 20110524
  27. PANTOPRAZOLE [Suspect]
     Indication: PROPHYLAXIS AGAINST GASTROINTESTINAL ULCER
     Dosage: 40 MG, 2X/DAY
     Route: 042
     Dates: start: 20110508, end: 20110518
  28. NALBUPHINE HYDROCHLORIDE [Concomitant]
     Indication: PAIN
     Dosage: UNK
     Route: 048
     Dates: start: 20110507, end: 20110515
  29. PARACETAMOL [Concomitant]
     Dosage: 400 MG, 4X/DAY IF NEEDED
     Dates: start: 20110505, end: 20110518
  30. ACETAMINOPHEN [Suspect]
     Indication: PAIN
     Dosage: 400 MG, 3X/DAY
     Route: 048
     Dates: start: 20110520, end: 20110520
  31. TRIMEBUTINE MALEATE [Concomitant]
     Dosage: 1 DF, 3X/DAY
     Dates: start: 20110505, end: 20110510
  32. FORLAX [Concomitant]
     Dosage: 1 DF, 2X/DAY
     Route: 048

REACTIONS (5)
  - VOMITING [None]
  - OFF LABEL USE [None]
  - PYREXIA [None]
  - JAUNDICE [None]
  - HEPATITIS ACUTE [None]
